FAERS Safety Report 8023381-9 (Version None)
Quarter: 2012Q1

REPORT INFORMATION
  Report Type: 
  Country: None (occurrence: None)
  Receive Date: 20120104
  Receipt Date: 20111230
  Transmission Date: 20120608
  Serious: Yes (Disabling)
  Sender: FDA-Public Use
  Company Number: GB-PFIZER INC-2012000277

PATIENT
  Age: 76 Year
  Sex: Female
  Weight: 90 kg

DRUGS (5)
  1. LOSARTAN [Concomitant]
     Indication: HYPERTENSION
     Dosage: 50 MG, UNK
     Route: 048
     Dates: start: 20030101
  2. OXYCONTIN [Concomitant]
     Indication: NEURALGIA
     Dosage: 100 MG, 1X/DAY
     Route: 048
     Dates: start: 20030101
  3. DIAMICRON [Concomitant]
     Indication: DIABETES MELLITUS
     Dosage: 30 MG, UNK
     Route: 048
     Dates: start: 20000101
  4. PREGABALIN [Suspect]
     Indication: NEURALGIA
     Dosage: 50 MG, 2X/DAY
     Route: 048
     Dates: start: 20111028, end: 20111203
  5. ATENOLOL [Concomitant]
     Indication: HYPERTENSION
     Dosage: 25 MG, UNK
     Route: 048
     Dates: start: 20030101

REACTIONS (4)
  - OEDEMA PERIPHERAL [None]
  - JOINT SWELLING [None]
  - MUSCULAR WEAKNESS [None]
  - PAIN IN EXTREMITY [None]
